FAERS Safety Report 9504354 (Version 5)
Quarter: 2014Q2

REPORT INFORMATION
  Report Type: Report from Study
  Country: GB (occurrence: GB)
  Receive Date: 20130906
  Receipt Date: 20140414
  Transmission Date: 20141212
  Serious: Yes (Other)
  Sender: FDA-Public Use
  Company Number: GB-ROCHE-1270412

PATIENT
  Age: 83 Year
  Sex: Male

DRUGS (10)
  1. RANIBIZUMAB [Suspect]
     Indication: AGE-RELATED MACULAR DEGENERATION
     Route: 050
     Dates: start: 20120307
  2. RANIBIZUMAB [Suspect]
     Route: 050
     Dates: start: 20120404
  3. RANIBIZUMAB [Suspect]
     Route: 050
     Dates: start: 20120430
  4. LATANOPROST [Concomitant]
     Route: 065
     Dates: start: 19960206, end: 20120430
  5. FINASTERIDE [Concomitant]
     Route: 065
     Dates: start: 20080919, end: 20120430
  6. OMEPRAZOLE [Concomitant]
     Route: 065
     Dates: start: 2008, end: 20120430
  7. ATENOLOL [Concomitant]
     Route: 065
     Dates: start: 19980101, end: 20120430
  8. OMACOR [Concomitant]
     Route: 065
     Dates: start: 19980201, end: 20120430
  9. SIMVASTATIN [Concomitant]
     Route: 065
     Dates: start: 19980201, end: 20120430
  10. OZURDEX [Concomitant]
     Route: 065
     Dates: start: 20120430, end: 20120430

REACTIONS (2)
  - Cataract [Unknown]
  - Inappropriate schedule of drug administration [Unknown]
